FAERS Safety Report 9381642 (Version 2)
Quarter: 2013Q3

REPORT INFORMATION
  Report Type: Spontaneous
  Country: IE (occurrence: IE)
  Receive Date: 20130703
  Receipt Date: 20130726
  Transmission Date: 20140515
  Serious: Yes (Other)
  Sender: FDA-Public Use
  Company Number: IE-PFIZER INC-2013194957

PATIENT
  Age: 35 Year
  Sex: Female

DRUGS (1)
  1. DEPO-PROVERA [Suspect]
     Indication: CONTRACEPTION
     Dosage: UNK, ONCE EVERY 12 WEEKS
     Route: 030
     Dates: start: 20130422

REACTIONS (3)
  - Pruritus [Recovered/Resolved]
  - Local swelling [Recovered/Resolved]
  - Flushing [Recovered/Resolved]
